FAERS Safety Report 8757238 (Version 1)
Quarter: 2012Q4

REPORT INFORMATION
  Report Type: 
  Country: IL (occurrence: IL)
  Receive Date: 20120828
  Receipt Date: 20120828
  Transmission Date: 20130627
  Serious: Yes (Hospitalization)
  Sender: FDA-Public Use
  Company Number: IL-MYLANLABS-2012S1016810

PATIENT
  Age: 68 Year
  Sex: Female

DRUGS (4)
  1. ALENDRONIC ACID [Suspect]
     Indication: OSTEOPOROSIS
     Route: 048
  2. EVISTA [Concomitant]
     Indication: OSTEOPOROSIS
     Route: 065
  3. CALCIUM [Concomitant]
     Indication: OSTEOPOROSIS
     Route: 065
  4. SIMVASTATIN [Concomitant]
     Indication: HYPERCHOLESTEROLAEMIA
     Route: 065

REACTIONS (3)
  - Osteonecrosis of jaw [Recovering/Resolving]
  - Trigeminal nerve disorder [Recovered/Resolved]
  - Numb chin syndrome [Recovering/Resolving]
